FAERS Safety Report 4631228-3 (Version None)
Quarter: 2005Q2

REPORT INFORMATION
  Report Type: 
  Country: None (occurrence: None)
  Receive Date: 20050406
  Receipt Date: 20050326
  Transmission Date: 20051028
  Serious: Yes (Disabling)
  Sender: FDA-Public Use
  Company Number: HQWYE420628MAR05

PATIENT
  Age: 54 Year
  Sex: Female

DRUGS (1)
  1. PREMARIN [Suspect]
     Indication: MENOPAUSAL SYMPTOMS
     Dosage: 2.5 MG TABLET DAILY, ORAL
     Route: 048
     Dates: start: 19950101

REACTIONS (4)
  - DEPRESSION [None]
  - GASTRITIS [None]
  - IRRITABLE BOWEL SYNDROME [None]
  - ULCER [None]
